FAERS Safety Report 16773018 (Version 1)
Quarter: 2019Q3

REPORT INFORMATION
  Report Type: Spontaneous
  Country: NL (occurrence: NL)
  Receive Date: 20190904
  Receipt Date: 20190904
  Transmission Date: 20191005
  Serious: Yes (Other)
  Sender: FDA-Public Use
  Company Number: NL-ANIPHARMA-2019-NL-000036

PATIENT
  Age: 69 Year
  Sex: Female
  Weight: 65 kg

DRUGS (5)
  1. ACETYLSALICYLIC ACID [Suspect]
     Active Substance: ASPIRIN
     Dosage: 1 DF DAILY
     Route: 065
     Dates: start: 20170410
  2. CO-DIOVAN [Suspect]
     Active Substance: HYDROCHLOROTHIAZIDE\VALSARTAN
     Dosage: 1 DF DAILY
     Route: 065
  3. CANDESARTAN CILEXETIL AND HYDROCHLOROTHIAZIDE [Suspect]
     Active Substance: CANDESARTAN CILEXETIL\HYDROCHLOROTHIAZIDE
     Indication: HYPERTENSION
     Dosage: 1 DF DAILY
     Route: 048
  4. ISOSORBIDE MONONITRATE. [Suspect]
     Active Substance: ISOSORBIDE MONONITRATE
     Dosage: (ISOSORBIDE MONONITRATE
     Route: 048
     Dates: start: 20170410
  5. SANDOZ VALSARTAN HCT [Suspect]
     Active Substance: HYDROCHLOROTHIAZIDE\VALSARTAN
     Dosage: 1 DF, DAILY (80/12.5 MG) / DOSE TEXT: 1 DF, DAILY (16/12.5 MG)
     Route: 065
     Dates: start: 20140112

REACTIONS (18)
  - Blood potassium increased [Unknown]
  - Sleep disorder [Unknown]
  - Haematochezia [Unknown]
  - Hypertension [Unknown]
  - Chest pain [Unknown]
  - Mean cell haemoglobin concentration abnormal [Unknown]
  - Colon cancer [Unknown]
  - Palpitations [Unknown]
  - Red blood cell sedimentation rate abnormal [Unknown]
  - Haemoglobin decreased [Unknown]
  - Angina pectoris [Unknown]
  - Mean cell haemoglobin decreased [Unknown]
  - Nocturnal dyspnoea [Unknown]
  - Dyspnoea [Unknown]
  - Blood lactate dehydrogenase increased [Unknown]
  - Blood pressure fluctuation [Unknown]
  - Blood creatinine increased [Unknown]
  - Aspartate aminotransferase increased [Unknown]

NARRATIVE: CASE EVENT DATE: 20190705
